FAERS Safety Report 21171406 (Version 1)
Quarter: 2022Q3

REPORT INFORMATION
  Report Type: Spontaneous
  Country: GB (occurrence: GB)
  Receive Date: 20220804
  Receipt Date: 20220804
  Transmission Date: 20221027
  Serious: Yes (Other)
  Sender: FDA-Public Use
  Company Number: GB-MHRA-MED-202207311004366690-RCNBS

PATIENT
  Age: 50 Year
  Sex: Male

DRUGS (2)
  1. TAMSULOSIN [Suspect]
     Active Substance: TAMSULOSIN
     Indication: Adverse drug reaction
     Dosage: 400MCG MR, THERAPY DURATION : 3 DAYS
     Route: 065
     Dates: start: 20220727, end: 20220730
  2. NIZATIDINE [Concomitant]
     Active Substance: NIZATIDINE
     Indication: Dyspepsia
     Dates: start: 20220727

REACTIONS (1)
  - Eye inflammation [Unknown]

NARRATIVE: CASE EVENT DATE: 20220731
